FAERS Safety Report 7513410-0 (Version None)
Quarter: 2011Q2

REPORT INFORMATION
  Report Type: 
  Country: None (occurrence: None)
  Receive Date: 20110531
  Receipt Date: 20110523
  Transmission Date: 20111010
  Serious: Yes (Hospitalization)
  Sender: FDA-Public Use
  Company Number: DE-GENZYME-CLOF-1001608

PATIENT
  Sex: Male
  Weight: 87.2 kg

DRUGS (7)
  1. AMSACRINE [Suspect]
     Indication: ACUTE MYELOID LEUKAEMIA
     Dosage: 157 MG, QD
     Route: 065
     Dates: start: 20110429, end: 20110504
  2. MEROPENEM [Concomitant]
     Indication: PYREXIA
     Dosage: 3 G, QD
     Route: 065
     Dates: end: 20110518
  3. EVOLTRA [Suspect]
     Dosage: 50 MG, QD
     Route: 042
     Dates: start: 20110502, end: 20110504
  4. ALLOPURINOL [Concomitant]
     Indication: TUMOUR LYSIS SYNDROME
     Dosage: 300 MG, QD
     Route: 065
     Dates: end: 20110429
  5. ZOVIRAX [Concomitant]
     Indication: ANTIVIRAL PROPHYLAXIS
     Dosage: 1500 MG, QD
     Route: 065
  6. EVOLTRA [Suspect]
     Indication: ACUTE MYELOID LEUKAEMIA
     Dosage: 50 MG, QD
     Route: 042
     Dates: start: 20110428, end: 20110430
  7. CYTARABINE [Suspect]
     Indication: ACUTE MYELOID LEUKAEMIA
     Dosage: 3940 MG, QD
     Route: 065
     Dates: start: 20110429, end: 20110504

REACTIONS (1)
  - TRANSIENT PSYCHOSIS [None]
